FAERS Safety Report 13090775 (Version 1)
Quarter: 2017Q1

REPORT INFORMATION
  Report Type: Report from Study
  Country: US (occurrence: US)
  Receive Date: 20170106
  Receipt Date: 20170106
  Transmission Date: 20170428
  Serious: Yes (Life-Threatening)
  Sender: FDA-Public Use
  Company Number: US-SUN PHARMACEUTICAL INDUSTRIES LTD-2016US-130845

PATIENT

DRUGS (2)
  1. SPIRONOLACTONE. [Suspect]
     Active Substance: SPIRONOLACTONE
     Indication: HORMONE THERAPY
     Route: 065
  2. ESTRADIOL. [Suspect]
     Active Substance: ESTRADIOL
     Indication: HORMONE THERAPY
     Route: 048

REACTIONS (1)
  - Embolism venous [Unknown]
